FAERS Safety Report 24377643 (Version 1)
Quarter: 2024Q3

REPORT INFORMATION
  Report Type: Spontaneous
  Country: US (occurrence: US)
  Receive Date: 20240930
  Receipt Date: 20240930
  Transmission Date: 20241017
  Serious: No
  Sender: PAREXEL
  Company Number: US-COHERUS BIOSCIENCES INC-2024-COH-US000906

PATIENT

DRUGS (1)
  1. YUSIMRY [Suspect]
     Active Substance: ADALIMUMAB-AQVH
     Indication: Ankylosing spondylitis
     Dosage: 40 MG, Q2WEEKS
     Route: 058
     Dates: start: 202404

REACTIONS (4)
  - Musculoskeletal discomfort [Unknown]
  - Product dose omission issue [Unknown]
  - Product quality issue [Unknown]
  - Product temperature excursion issue [Unknown]

NARRATIVE: CASE EVENT DATE: 20240101
